FAERS Safety Report 5646658-0 (Version None)
Quarter: 2008Q1

REPORT INFORMATION
  Report Type: 
  Country: None (occurrence: None)
  Receive Date: 20080303
  Receipt Date: 20080226
  Transmission Date: 20080703
  Serious: Yes (Life-Threatening, Hospitalization, Other)
  Sender: FDA-Public Use
  Company Number: PHBS2007US19530

PATIENT
  Age: 29 Year
  Sex: Female

DRUGS (6)
  1. OXYGEN [Concomitant]
  2. LIORESAL [Suspect]
     Indication: MUSCLE SPASTICITY
     Dosage: 1000 MCG/DAY
     Route: 037
  3. LIORESAL [Suspect]
     Dosage: 625 UG/DAY
     Route: 037
  4. LIORESAL [Suspect]
     Dosage: 675 UG/DAY
     Route: 037
  5. LIORESAL [Suspect]
     Dosage: 900 UG/DAY
  6. BACLOFEN [Suspect]
     Dosage: 20 MG, Q4H
     Route: 048

REACTIONS (20)
  - ABDOMINAL PAIN [None]
  - ATELECTASIS [None]
  - BLADDER CATHETERISATION [None]
  - CARDIO-RESPIRATORY ARREST [None]
  - CONVULSION [None]
  - GASTRITIS [None]
  - GASTROINTESTINAL HAEMORRHAGE [None]
  - HYPERHIDROSIS [None]
  - HYPERTONIA [None]
  - INSOMNIA [None]
  - PNEUMONIA [None]
  - PYREXIA [None]
  - RESPIRATORY DISORDER [None]
  - SOMNOLENCE [None]
  - SURGERY [None]
  - TACHYCARDIA [None]
  - TACHYPNOEA [None]
  - URINARY RETENTION [None]
  - URINARY TRACT INFECTION [None]
  - WITHDRAWAL SYNDROME [None]
